FAERS Safety Report 18342634 (Version 1)
Quarter: 2020Q4

REPORT INFORMATION
  Report Type: Spontaneous
  Country: US (occurrence: US)
  Receive Date: 20201005
  Receipt Date: 20201005
  Transmission Date: 20210113
  Serious: No
  Sender: FDA-Public Use
  Company Number: US-SA-2020SA266336

PATIENT

DRUGS (6)
  1. DUPIXENT [Suspect]
     Active Substance: DUPILUMAB
     Indication: DERMATITIS ATOPIC
     Dosage: 200 MG, QOW
     Route: 058
     Dates: start: 201909
  2. ZYRTEC [Concomitant]
     Active Substance: CETIRIZINE HYDROCHLORIDE
  3. VANICREAM [Concomitant]
     Active Substance: TITANIUM DIOXIDE\ZINC OXIDE
  4. DIPHENHYDRAMINE. [Concomitant]
     Active Substance: DIPHENHYDRAMINE
  5. EPIPEN [Concomitant]
     Active Substance: EPINEPHRINE
  6. TRIAMCINOLONE ACETONIDE. [Concomitant]
     Active Substance: TRIAMCINOLONE ACETONIDE

REACTIONS (3)
  - Eye irritation [Not Recovered/Not Resolved]
  - Product use issue [Unknown]
  - Ocular hyperaemia [Not Recovered/Not Resolved]

NARRATIVE: CASE EVENT DATE: 2019
